FAERS Safety Report 17639010 (Version 1)
Quarter: 2020Q2

REPORT INFORMATION
  Report Type: Spontaneous
  Country: CN (occurrence: CN)
  Receive Date: 20200407
  Receipt Date: 20200407
  Transmission Date: 20200713
  Serious: Yes (Other)
  Sender: FDA-Public Use
  Company Number: CN-ALVOGEN-2020-ALVOGEN-107976

PATIENT
  Age: 58 Year
  Sex: Female

DRUGS (1)
  1. MELPHALAN. [Suspect]
     Active Substance: MELPHALAN
     Indication: PLASMA CELL MYELOMA
     Dosage: 200 MG/M2 IN TWO DIVIDED DOSES?ON D-3 AND D-2
     Dates: start: 20170421

REACTIONS (10)
  - Atrial fibrillation [Unknown]
  - Stomatitis [Recovered/Resolved]
  - Hypokalaemia [Recovered/Resolved]
  - Atrial flutter [Unknown]
  - Syncope [Unknown]
  - Diarrhoea [Recovered/Resolved]
  - Overdose [Unknown]
  - Nausea [Recovered/Resolved]
  - Sinus arrest [Unknown]
  - Vomiting [Recovered/Resolved]
